FAERS Safety Report 21936255 (Version 10)
Quarter: 2024Q1

REPORT INFORMATION
  Report Type: Spontaneous
  Country: US (occurrence: US)
  Receive Date: 20230201
  Receipt Date: 20240227
  Transmission Date: 20240410
  Serious: Yes (Hospitalization, Other)
  Sender: FDA-Public Use
  Company Number: US-BEH-2023154669

PATIENT
  Age: 39 Year
  Sex: Male

DRUGS (26)
  1. IDELVION [Suspect]
     Active Substance: COAGULATION FACTOR IX RECOMBINANT HUMAN
     Indication: Von Willebrand^s disease
     Dosage: UNK, QW
     Route: 042
  2. IDELVION [Suspect]
     Active Substance: COAGULATION FACTOR IX RECOMBINANT HUMAN
     Indication: Von Willebrand^s disease
     Dosage: UNK, QW
     Route: 042
  3. IDELVION [Suspect]
     Active Substance: COAGULATION FACTOR IX RECOMBINANT HUMAN
     Indication: Prophylaxis
     Dosage: 6000 INTERNATIONAL UNIT (5400-6600) ON DAY 1
     Route: 042
  4. IDELVION [Suspect]
     Active Substance: COAGULATION FACTOR IX RECOMBINANT HUMAN
     Indication: Prophylaxis
     Dosage: 6000 INTERNATIONAL UNIT (5400-6600) ON DAY 1
     Route: 042
  5. IDELVION [Suspect]
     Active Substance: COAGULATION FACTOR IX RECOMBINANT HUMAN
     Indication: Factor IX deficiency
     Dosage: 3000 INTERNATIONAL UNIT (2700-3300) ON DAYS 3 AND 5
     Route: 042
  6. IDELVION [Suspect]
     Active Substance: COAGULATION FACTOR IX RECOMBINANT HUMAN
     Indication: Factor IX deficiency
     Dosage: 3000 INTERNATIONAL UNIT (2700-3300) ON DAYS 3 AND 5
     Route: 042
  7. IDELVION [Suspect]
     Active Substance: COAGULATION FACTOR IX RECOMBINANT HUMAN
     Dosage: 4000 INTERNATIONAL UNIT ON DAY 8
     Route: 042
  8. IDELVION [Suspect]
     Active Substance: COAGULATION FACTOR IX RECOMBINANT HUMAN
     Dosage: 4000 INTERNATIONAL UNIT ON DAY 8
     Route: 042
  9. IDELVION [Suspect]
     Active Substance: COAGULATION FACTOR IX RECOMBINANT HUMAN
     Dosage: 1093 INTERNATIONAL UNIT, QOW
     Route: 042
     Dates: start: 202301
  10. IDELVION [Suspect]
     Active Substance: COAGULATION FACTOR IX RECOMBINANT HUMAN
     Dosage: 1093 INTERNATIONAL UNIT, QOW
     Route: 042
     Dates: start: 202301
  11. IDELVION [Suspect]
     Active Substance: COAGULATION FACTOR IX RECOMBINANT HUMAN
     Dosage: 3901 INTERNATIONAL UNIT, QOW
     Route: 042
     Dates: start: 202301
  12. IDELVION [Suspect]
     Active Substance: COAGULATION FACTOR IX RECOMBINANT HUMAN
     Dosage: 3901 INTERNATIONAL UNIT, QOW
     Route: 042
     Dates: start: 202301
  13. IDELVION [Suspect]
     Active Substance: COAGULATION FACTOR IX RECOMBINANT HUMAN
     Dosage: 4000 INTERNATIONAL UNIT, QOW
     Route: 042
     Dates: start: 202301
  14. IDELVION [Suspect]
     Active Substance: COAGULATION FACTOR IX RECOMBINANT HUMAN
     Dosage: 4000 INTERNATIONAL UNIT, QOW
     Route: 042
     Dates: start: 202301
  15. IDELVION [Suspect]
     Active Substance: COAGULATION FACTOR IX RECOMBINANT HUMAN
     Dosage: 1300 INTERNATIONAL UNIT, QOW
     Route: 042
     Dates: start: 202301
  16. IDELVION [Suspect]
     Active Substance: COAGULATION FACTOR IX RECOMBINANT HUMAN
     Dosage: 1300 INTERNATIONAL UNIT, QOW
     Route: 042
     Dates: start: 202301
  17. IDELVION [Suspect]
     Active Substance: COAGULATION FACTOR IX RECOMBINANT HUMAN
     Dosage: 4000 INTERNATIONAL UNIT, QOW
     Route: 042
     Dates: start: 202304
  18. IDELVION [Suspect]
     Active Substance: COAGULATION FACTOR IX RECOMBINANT HUMAN
     Dosage: 4000 INTERNATIONAL UNIT, QOW
     Route: 042
     Dates: start: 202304
  19. IDELVION [Suspect]
     Active Substance: COAGULATION FACTOR IX RECOMBINANT HUMAN
     Dosage: 1300 INTERNATIONAL UNIT, QOW
     Route: 042
     Dates: start: 202304
  20. IDELVION [Suspect]
     Active Substance: COAGULATION FACTOR IX RECOMBINANT HUMAN
     Dosage: 1300 INTERNATIONAL UNIT, QOW
     Route: 042
     Dates: start: 202304
  21. IDELVION [Suspect]
     Active Substance: COAGULATION FACTOR IX RECOMBINANT HUMAN
     Dosage: 1800 INTERNATIONAL UNIT, QOW, EVERY 14 DAYS
     Route: 042
     Dates: start: 202301
  22. IDELVION [Suspect]
     Active Substance: COAGULATION FACTOR IX RECOMBINANT HUMAN
     Dosage: 1800 INTERNATIONAL UNIT, QOW, EVERY 14 DAYS
     Route: 042
     Dates: start: 202301
  23. IDELVION [Suspect]
     Active Substance: COAGULATION FACTOR IX RECOMBINANT HUMAN
     Dosage: 5300 INTERNATIONAL UNIT, QOW, EVERY 14 DAYS
     Route: 042
     Dates: start: 202301
  24. IDELVION [Suspect]
     Active Substance: COAGULATION FACTOR IX RECOMBINANT HUMAN
     Dosage: 5300 INTERNATIONAL UNIT, QOW, EVERY 14 DAYS
     Route: 042
     Dates: start: 202301
  25. IDELVION [Suspect]
     Active Substance: COAGULATION FACTOR IX RECOMBINANT HUMAN
     Indication: Factor IX deficiency
     Dosage: 3500 INTERNATIONAL UNIT, QOW, EVERY 14 DAYS
     Route: 042
     Dates: start: 202301
  26. IDELVION [Suspect]
     Active Substance: COAGULATION FACTOR IX RECOMBINANT HUMAN
     Indication: Factor IX deficiency
     Dosage: 3500 INTERNATIONAL UNIT, QOW, EVERY 14 DAYS
     Route: 042
     Dates: start: 202301

REACTIONS (14)
  - Haemarthrosis [Not Recovered/Not Resolved]
  - Arthrodesis [Unknown]
  - No adverse event [Unknown]
  - Off label use [Unknown]
  - Procedural haemorrhage [Unknown]
  - Haemorrhage [Unknown]
  - Haemarthrosis [Not Recovered/Not Resolved]
  - Haemorrhage [Recovered/Resolved]
  - Haemorrhage [Unknown]
  - Joint swelling [Unknown]
  - Arthralgia [Unknown]
  - Haemorrhage [Unknown]
  - Haemarthrosis [Recovered/Resolved]
  - Haemorrhage [Unknown]

NARRATIVE: CASE EVENT DATE: 20230101
